FAERS Safety Report 14895101 (Version 2)
Quarter: 2018Q3

REPORT INFORMATION
  Report Type: Report from Study
  Country: BR (occurrence: BR)
  Receive Date: 20180515
  Receipt Date: 20180723
  Transmission Date: 20181010
  Serious: Yes (Death, Other)
  Sender: FDA-Public Use
  Company Number: BR-ROCHE-2120608

PATIENT
  Age: 54 Year
  Sex: Male
  Weight: 54.4 kg

DRUGS (1)
  1. ATEZOLIZUMAB. [Suspect]
     Active Substance: ATEZOLIZUMAB
     Indication: NON-SMALL CELL LUNG CANCER METASTATIC
     Route: 042
     Dates: start: 20171127, end: 20180702

REACTIONS (8)
  - Productive cough [Recovering/Resolving]
  - Oedema peripheral [Recovered/Resolved]
  - Arthralgia [Recovered/Resolved]
  - Insomnia [Recovering/Resolving]
  - Dyspnoea [Fatal]
  - Musculoskeletal pain [Recovering/Resolving]
  - Pulmonary embolism [Recovering/Resolving]
  - Pneumonitis [Recovering/Resolving]

NARRATIVE: CASE EVENT DATE: 20171211
